FAERS Safety Report 24038988 (Version 1)
Quarter: 2024Q3

REPORT INFORMATION
  Report Type: Spontaneous
  Country: US (occurrence: US)
  Receive Date: 20240702
  Receipt Date: 20240702
  Transmission Date: 20241016
  Serious: Yes (Hospitalization)
  Sender: Steriscience PTE
  Company Number: US-STERISCIENCE B.V.-2024-ST-000932

PATIENT
  Age: 29 Year
  Sex: Male

DRUGS (1)
  1. OXACILLIN [Suspect]
     Active Substance: OXACILLIN SODIUM
     Indication: Staphylococcal infection
     Dosage: UNK
     Route: 042

REACTIONS (1)
  - Drug ineffective [Unknown]
